FAERS Safety Report 13783376 (Version 1)
Quarter: 2017Q3

REPORT INFORMATION
  Report Type: Spontaneous
  Country: US (occurrence: US)
  Receive Date: 20170724
  Receipt Date: 20170724
  Transmission Date: 20171127
  Serious: Yes (Other)
  Sender: FDA-Public Use
  Company Number: US-GILEAD-2017-0283967

PATIENT
  Sex: Male

DRUGS (1)
  1. HARVONI [Suspect]
     Active Substance: LEDIPASVIR\SOFOSBUVIR
     Indication: CHRONIC HEPATITIS C
     Dosage: UNK, 12WEEKS
     Route: 065

REACTIONS (4)
  - Hepatic cirrhosis [Unknown]
  - Genotype drug resistance test positive [Unknown]
  - Drug ineffective [Unknown]
  - Hepatitis C [Unknown]
